FAERS Safety Report 6278433-0 (Version None)
Quarter: 2009Q3

REPORT INFORMATION
  Report Type: 
  Country: None (occurrence: None)
  Receive Date: 20090721
  Receipt Date: 20090706
  Transmission Date: 20100115
  Serious: Yes (Hospitalization, Other)
  Sender: FDA-Public Use
  Company Number: 390001L09KOR

PATIENT
  Age: 37 Year
  Sex: Female

DRUGS (3)
  1. CETROTIDE [Suspect]
     Indication: ASSISTED FERTILISATION
     Dosage: 0.25 MG, 1 IN 1 DAYS
  2. PUREGON (FOLLITROPIN BETA) [Concomitant]
  3. MENOTROPINS [Concomitant]

REACTIONS (2)
  - ABORTION INDUCED [None]
  - ECTOPIC PREGNANCY [None]
